FAERS Safety Report 20940102 (Version 1)
Quarter: 2022Q2

REPORT INFORMATION
  Report Type: Spontaneous
  Country: CN (occurrence: CN)
  Receive Date: 20220609
  Receipt Date: 20220609
  Transmission Date: 20220720
  Serious: Yes (Hospitalization, Other)
  Sender: FDA-Public Use
  Company Number: CN-PFIZER INC-202200798716

PATIENT
  Age: 75 Year
  Sex: Male
  Weight: 60 kg

DRUGS (3)
  1. SERTRALINE HYDROCHLORIDE [Suspect]
     Active Substance: SERTRALINE HYDROCHLORIDE
     Indication: Affective disorder
     Dosage: 50.000 MG, 1X/DAY
     Route: 048
     Dates: start: 20220302, end: 20220530
  2. QUETIAPINE FUMARATE [Suspect]
     Active Substance: QUETIAPINE FUMARATE
     Indication: Affective disorder
     Dosage: 100.000 MG, 1X/DAY
     Route: 048
     Dates: start: 20220302, end: 20220530
  3. AGOMELATINE [Suspect]
     Active Substance: AGOMELATINE
     Indication: Sleep disorder
     Dosage: 12.500 MG, 1X/DAY
     Route: 048
     Dates: start: 20220302, end: 20220530

REACTIONS (1)
  - Tardive dyskinesia [Unknown]

NARRATIVE: CASE EVENT DATE: 20220530
